FAERS Safety Report 9828696 (Version 1)
Quarter: 2014Q1

REPORT INFORMATION
  Report Type: Spontaneous
  Country: US (occurrence: US)
  Receive Date: 20140117
  Receipt Date: 20140117
  Transmission Date: 20141002
  Serious: No
  Sender: FDA-Public Use
  Company Number: US-009507513-1401USA006908

PATIENT
  Age: 18 Year
  Sex: Female
  Weight: 58.96 kg

DRUGS (1)
  1. NEXPLANON [Suspect]
     Indication: CONTRACEPTION
     Dosage: LEFT INNER ARM 4^11
     Route: 059
     Dates: start: 20121001

REACTIONS (5)
  - Oligomenorrhoea [Unknown]
  - Hypertension [Unknown]
  - Migraine [Unknown]
  - Influenza like illness [Unknown]
  - Hypoaesthesia [Unknown]
